FAERS Safety Report 18756855 (Version 1)
Quarter: 2021Q1

REPORT INFORMATION
  Report Type: Spontaneous
  Country: US (occurrence: US)
  Receive Date: 20210118
  Receipt Date: 20210118
  Transmission Date: 20210419
  Serious: Yes (Other)
  Sender: FDA-Public Use
  Company Number: None

PATIENT
  Age: 51 Year
  Sex: Female
  Weight: 96.75 kg

DRUGS (1)
  1. AVONEX PEN [Suspect]
     Active Substance: INTERFERON BETA-1A
     Indication: MULTIPLE SCLEROSIS
     Dosage: ?          QUANTITY:1 30 MCG;OTHER FREQUENCY:WEEKLY;?
     Route: 030

REACTIONS (2)
  - Limb mass [None]
  - Pain in extremity [None]

NARRATIVE: CASE EVENT DATE: 20200819
